FAERS Safety Report 18473471 (Version 1)
Quarter: 2020Q4

REPORT INFORMATION
  Report Type: Spontaneous
  Country: DE (occurrence: DE)
  Receive Date: 20201106
  Receipt Date: 20201106
  Transmission Date: 20210114
  Serious: Yes (Hospitalization, Other)
  Sender: FDA-Public Use
  Company Number: DE-PFIZER INC-2020430437

PATIENT
  Age: 77 Year
  Sex: Male
  Weight: 80 kg

DRUGS (5)
  1. PREDNISOLONE. [Suspect]
     Active Substance: PREDNISOLONE
     Dosage: 5 MG, 1X/DAY, 1-0-0-0
  2. RAMIPRIL. [Concomitant]
     Active Substance: RAMIPRIL
     Dosage: 5 MG, 1X/DAY, 1-0-0-0
  3. BECLOMETASONE/FORMOTEROL [Concomitant]
     Dosage: UNK, 1X/DAY
     Route: 055
  4. IBUPROFEN. [Suspect]
     Active Substance: IBUPROFEN
     Dosage: 400 MG, 2X/DAY, 1-0-1-0
  5. MIRTAZAPIN [Concomitant]
     Active Substance: MIRTAZAPINE
     Dosage: 15 MG, 1X/DAY, 0-0-1-0

REACTIONS (6)
  - Cough [Unknown]
  - Respiratory tract haemorrhage [Unknown]
  - Haemoptysis [Unknown]
  - Pallor [Unknown]
  - Anaemia [Unknown]
  - General physical health deterioration [Unknown]
